FAERS Safety Report 9695863 (Version 1)
Quarter: 2013Q4

REPORT INFORMATION
  Report Type: Spontaneous
  Country: US (occurrence: None)
  Receive Date: 20131118
  Receipt Date: 20131118
  Transmission Date: 20140711
  Serious: Yes (Other)
  Sender: FDA-Public Use
  Company Number: None

PATIENT
  Age: 79 Year
  Sex: Male
  Weight: 61.69 kg

DRUGS (1)
  1. CIPROFLAXIN [Suspect]
     Indication: URINARY TRACT INFECTION
     Route: 048
     Dates: start: 20131105, end: 20131110

REACTIONS (5)
  - Dizziness [None]
  - Pain [None]
  - Vertigo [None]
  - Tendon pain [None]
  - Arthralgia [None]
